FAERS Safety Report 4784373-6 (Version None)
Quarter: 2005Q3

REPORT INFORMATION
  Report Type: 
  Country: None (occurrence: None)
  Receive Date: 20050929
  Receipt Date: 20050929
  Transmission Date: 20060218
  Serious: Yes (Other)
  Sender: FDA-Public Use
  Company Number: None

PATIENT
  Sex: Female
  Weight: 54.4316 kg

DRUGS (2)
  1. PAROXOTINE 40 MGS GLAXO SMITH KLINE [Suspect]
     Indication: ANXIETY
     Dosage: 5 MGS DOWN FROM 40 MGS ONCE A DAY PO
     Route: 048
     Dates: start: 20040401, end: 20050925
  2. PAROXOTINE 40 MGS GLAXO SMITH KLINE [Suspect]
     Indication: DEPRESSION
     Dosage: 5 MGS DOWN FROM 40 MGS ONCE A DAY PO
     Route: 048
     Dates: start: 20040401, end: 20050925

REACTIONS (8)
  - ACTIVITIES OF DAILY LIVING IMPAIRED [None]
  - BALANCE DISORDER [None]
  - DRUG WITHDRAWAL SYNDROME [None]
  - FEELING ABNORMAL [None]
  - MALAISE [None]
  - MOBILITY DECREASED [None]
  - PAIN [None]
  - PYREXIA [None]
